FAERS Safety Report 4849665-0 (Version None)
Quarter: 2005Q4

REPORT INFORMATION
  Report Type: 
  Country: None (occurrence: None)
  Receive Date: 20051115
  Receipt Date: 20051006
  Transmission Date: 20060501
  Serious: No
  Sender: FDA-Public Use
  Company Number: S05-USA-04574-01

PATIENT
  Age: 85 Year
  Sex: Female

DRUGS (12)
  1. NAMENDA [Suspect]
     Indication: DEMENTIA
     Dosage: 10 MG BID PO
     Route: 048
     Dates: start: 20050929
  2. NAMENDA [Suspect]
     Indication: DEMENTIA
     Dosage: 5 MG QD PO
     Route: 048
     Dates: start: 20050908, end: 20050914
  3. NAMENDA [Suspect]
     Indication: DEMENTIA
     Dosage: 5 MG BID PO
     Route: 048
     Dates: start: 20050915, end: 20050921
  4. NAMENDA [Suspect]
     Indication: DEMENTIA
     Dosage: 15 MG QD PO
     Route: 048
     Dates: start: 20050922, end: 20050928
  5. FLONASE [Concomitant]
  6. HYDROCHLOROTHIAZIDE [Concomitant]
  7. LEVOTHYROXINE SODIUM [Concomitant]
  8. LISINOPRIL [Concomitant]
  9. LOPRESSOR [Concomitant]
  10. NITROGLYCERIN [Concomitant]
  11. PREMARIN [Concomitant]
  12. CALCIUM WITH VITAMIN D [Concomitant]

REACTIONS (1)
  - ARTHRALGIA [None]
